FAERS Safety Report 21146126 (Version 1)
Quarter: 2022Q3

REPORT INFORMATION
  Report Type: Spontaneous
  Country: AU (occurrence: AU)
  Receive Date: 20220729
  Receipt Date: 20220729
  Transmission Date: 20221027
  Serious: Yes (Death, Other)
  Sender: FDA-Public Use
  Company Number: AU-ASPEN-GLO2022AU004280

PATIENT

DRUGS (1)
  1. BUSULFAN [Suspect]
     Active Substance: BUSULFAN
     Indication: Aplastic anaemia
     Dosage: UNK
     Route: 065

REACTIONS (3)
  - Intentional product misuse [Fatal]
  - Neutropenic sepsis [Fatal]
  - Pancytopenia [Fatal]
